FAERS Safety Report 18038566 (Version 3)
Quarter: 2020Q3

REPORT INFORMATION
  Report Type: Spontaneous
  Country: US (occurrence: US)
  Receive Date: 20200717
  Receipt Date: 20200724
  Transmission Date: 20201103
  Serious: No
  Sender: FDA-Public Use
  Company Number: US-PFIZER INC-2020272538

PATIENT
  Age: 81 Year
  Sex: Female
  Weight: 53.52 kg

DRUGS (2)
  1. CASTOR OIL. [Concomitant]
     Active Substance: CASTOR OIL
     Dosage: UNK
  2. PACLITAXEL. [Suspect]
     Active Substance: PACLITAXEL
     Dosage: UNK (ONCE A WEEK, 3 TIMES A MONTH)
     Route: 042

REACTIONS (1)
  - Off label use [Unknown]
